FAERS Safety Report 4910846-9 (Version None)
Quarter: 2006Q1

REPORT INFORMATION
  Report Type: 
  Country: None (occurrence: None)
  Receive Date: 20060214
  Receipt Date: 20060117
  Transmission Date: 20060701
  Serious: Yes (Disabling)
  Sender: FDA-Public Use
  Company Number: JP-JPN-A200600210

PATIENT
  Age: 21 Year
  Sex: Female
  Weight: 47 kg

DRUGS (6)
  1. PAXIL [Suspect]
     Indication: DEPRESSION
     Route: 048
     Dates: start: 20040910
  2. LIMAS [Suspect]
     Indication: MANIA
     Dosage: 200MG SEE DOSAGE TEXT
     Route: 048
     Dates: start: 20050502
  3. MYSLEE [Suspect]
     Indication: INSOMNIA
     Route: 048
     Dates: start: 20050926
  4. LOXONIN [Suspect]
     Route: 048
  5. LUDIOMIL [Concomitant]
     Indication: DEPRESSION
     Route: 048
     Dates: start: 19990920, end: 20050414
  6. DEPROMEL [Concomitant]
     Indication: DEPRESSION
     Route: 048
     Dates: start: 20000413, end: 20040909

REACTIONS (7)
  - CHEST PAIN [None]
  - DYSPNOEA [None]
  - FATIGUE [None]
  - FEELING ABNORMAL [None]
  - HALLUCINATION [None]
  - HALLUCINATION, VISUAL [None]
  - MALAISE [None]
